FAERS Safety Report 4616058-0 (Version None)
Quarter: 2005Q1

REPORT INFORMATION
  Report Type: 
  Country: None (occurrence: None)
  Receive Date: 20050321
  Receipt Date: 20050310
  Transmission Date: 20050727
  Serious: Yes (Other)
  Sender: FDA-Public Use
  Company Number: 2005-03-0754

PATIENT
  Age: 3 Year
  Sex: Male

DRUGS (1)
  1. DESALEX (DESLORATADINE) SYRUP 'LIKE CLARINEX' [Suspect]
     Indication: RHINITIS ALLERGIC
     Dosage: 5 ML QD ORAL
     Route: 048
     Dates: start: 20050309, end: 20050309

REACTIONS (3)
  - HALLUCINATIONS, MIXED [None]
  - INSOMNIA [None]
  - RESTLESSNESS [None]
